FAERS Safety Report 9288352 (Version 1)
Quarter: 2013Q2

REPORT INFORMATION
  Report Type: Spontaneous
  Country: US (occurrence: None)
  Receive Date: 20130513
  Receipt Date: 20130513
  Transmission Date: 20140414
  Serious: Yes (Other)
  Sender: FDA-Public Use
  Company Number: None

PATIENT
  Age: 74 Year
  Sex: Female
  Weight: 71.67 kg

DRUGS (2)
  1. BYSTOLIC [Suspect]
     Indication: AORTIC VALVE REPLACEMENT
     Dosage: 1 DAILY PO
     Dates: start: 20130307, end: 20130331
  2. METROPOLOL [Suspect]
     Indication: AORTIC VALVE REPLACEMENT
     Dosage: 1 DAILY PO
     Dates: start: 20121020, end: 20130215

REACTIONS (9)
  - Migraine [None]
  - Depression [None]
  - Weight increased [None]
  - Rubber sensitivity [None]
  - Condition aggravated [None]
  - Vision blurred [None]
  - Arthralgia [None]
  - Myalgia [None]
  - Thinking abnormal [None]
